FAERS Safety Report 14662949 (Version 2)
Quarter: 2018Q2

REPORT INFORMATION
  Report Type: Spontaneous
  Country: FR (occurrence: FR)
  Receive Date: 20180321
  Receipt Date: 20180412
  Transmission Date: 20180711
  Serious: Yes (Death, Life-Threatening, Hospitalization, Other)
  Sender: FDA-Public Use
  Company Number: FR-SA-2018SA077136

PATIENT
  Age: 59 Year
  Sex: Male

DRUGS (8)
  1. DEXAMETHASONE. [Concomitant]
     Active Substance: DEXAMETHASONE
     Indication: MANTLE CELL LYMPHOMA
     Dosage: CYCLIC (R-DHAO)
  2. BICNU [Concomitant]
     Active Substance: CARMUSTINE
     Indication: MANTLE CELL LYMPHOMA STAGE III
     Dosage: D-7 (BEAM)
     Route: 065
  3. OXALIPLATIN. [Suspect]
     Active Substance: OXALIPLATIN
     Indication: MANTLE CELL LYMPHOMA
     Dosage: CYCLIC (R-DHAO)
     Route: 065
  4. ARA-C [Concomitant]
     Active Substance: CYTARABINE
     Indication: MANTLE CELL LYMPHOMA
     Dosage: CYCLIC (R-DHAO
     Route: 065
  5. RITUXIMAB. [Concomitant]
     Active Substance: RITUXIMAB
     Indication: MANTLE CELL LYMPHOMA
     Dosage: CYCLIC (R-DHAO)
     Route: 065
  6. MELPHALAN. [Concomitant]
     Active Substance: MELPHALAN
     Indication: MANTLE CELL LYMPHOMA STAGE III
     Dosage: D-2 (BEAM)
     Route: 065
  7. ETOPOPHOS [Concomitant]
     Active Substance: ETOPOSIDE PHOSPHATE
     Indication: MANTLE CELL LYMPHOMA STAGE III
     Dosage: D-6 TO D-3 (BEAM)
     Route: 065
  8. ARACYTINE [Concomitant]
     Active Substance: CYTARABINE
     Indication: MANTLE CELL LYMPHOMA STAGE III
     Dosage: D-6 TO D-3 (BEAM)
     Route: 065

REACTIONS (8)
  - Arrhythmia [Fatal]
  - Hepatocellular injury [Fatal]
  - Hepatic failure [Fatal]
  - Venoocclusive liver disease [Fatal]
  - Transaminases increased [Fatal]
  - Multiple organ dysfunction syndrome [Fatal]
  - Acute kidney injury [Fatal]
  - Intestinal ischaemia [Fatal]
